FAERS Safety Report 4601051-4 (Version None)
Quarter: 2005Q1

REPORT INFORMATION
  Report Type: 
  Country: None (occurrence: None)
  Receive Date: 20050127
  Receipt Date: 20041111
  Transmission Date: 20050727
  Serious: No
  Sender: FDA-Public Use
  Company Number: USA041183885

PATIENT
  Age: 54 Year
  Sex: Male

DRUGS (6)
  1. STRATTERA [Suspect]
     Dosage: 65 MG IN THE EVENING
     Dates: start: 20040101
  2. ATIVAN [Concomitant]
  3. DEPAKOTE [Concomitant]
  4. ZOCOR (SIMVASTATIN RATIOPHARM) [Concomitant]
  5. SYNTHROID [Concomitant]
  6. VITAMINS [Concomitant]

REACTIONS (2)
  - FREQUENT BOWEL MOVEMENTS [None]
  - STOMACH DISCOMFORT [None]
